FAERS Safety Report 15494491 (Version 1)
Quarter: 2018Q4

REPORT INFORMATION
  Report Type: Spontaneous
  Country: US (occurrence: US)
  Receive Date: 20181012
  Receipt Date: 20181012
  Transmission Date: 20190205
  Serious: No
  Sender: FDA-Public Use
  Company Number: None

PATIENT

DRUGS (1)
  1. DONEPEZIL. [Suspect]
     Active Substance: DONEPEZIL

REACTIONS (1)
  - Nausea [None]
